FAERS Safety Report 9438114 (Version 1)
Quarter: 2013Q3

REPORT INFORMATION
  Report Type: Spontaneous
  Country: PR (occurrence: PR)
  Receive Date: 20130802
  Receipt Date: 20130802
  Transmission Date: 20140515
  Serious: No
  Sender: FDA-Public Use
  Company Number: PR-BRISTOL-MYERS SQUIBB COMPANY-16896953

PATIENT
  Age: 60 Year
  Sex: Female
  Weight: 86.17 kg

DRUGS (5)
  1. COUMADIN TABS 6 MG [Suspect]
     Dosage: 5MG TAB EXP DT:DEC2014?2MG TAB LOT: OL58078B,EXPIRATION: DEC2013
  2. LOSARTAN [Concomitant]
     Indication: HYPERTENSION
  3. LASIX [Concomitant]
  4. METFORMIN HCL [Concomitant]
     Indication: BLOOD GLUCOSE INCREASED
  5. AMLODIPINE [Concomitant]
     Indication: HYPERTENSION

REACTIONS (2)
  - Chest pain [Not Recovered/Not Resolved]
  - International normalised ratio decreased [Unknown]
